FAERS Safety Report 4458181-X (Version None)
Quarter: 2004Q3

REPORT INFORMATION
  Report Type: 
  Country: None (occurrence: None)
  Receive Date: 20040922
  Receipt Date: 20040909
  Transmission Date: 20050211
  Serious: Yes (Disabling)
  Sender: FDA-Public Use
  Company Number: 2004SE05049

PATIENT
  Age: 15 Year
  Sex: Female
  Weight: 70 kg

DRUGS (2)
  1. SEROQUEL [Suspect]
     Indication: PSYCHOTIC DISORDER
     Dosage: 800 MG DAILY PO
     Route: 048
     Dates: start: 20020202
  2. TRILEPTAL [Concomitant]

REACTIONS (1)
  - VISUAL ACUITY REDUCED [None]
